FAERS Safety Report 9601788 (Version 1)
Quarter: 2013Q4

REPORT INFORMATION
  Report Type: Spontaneous
  Country: US (occurrence: None)
  Receive Date: 20131004
  Receipt Date: 20131004
  Transmission Date: 20140711
  Serious: Yes (Other)
  Sender: FDA-Public Use
  Company Number: None

PATIENT
  Age: 69 Year
  Sex: Male
  Weight: 77.11 kg

DRUGS (4)
  1. FLUOROURACIL [Suspect]
     Indication: PRECANCEROUS SKIN LESION
     Dosage: COVERED SPECIFIC AREA, ONCE DALY, ON THE SKIN
     Route: 061
     Dates: start: 20130916, end: 20130929
  2. RAPAFLO [Concomitant]
  3. LATANOPROST .005% SOL [Concomitant]
  4. LEVITRA [Concomitant]

REACTIONS (3)
  - Dizziness [None]
  - Gait disturbance [None]
  - Dysstasia [None]
